FAERS Safety Report 8135564 (Version 8)
Quarter: 2013Q3

REPORT INFORMATION
  Report Type: Spontaneous
  Country: US (occurrence: US)
  Receive Date: 20110914
  Receipt Date: 20130927
  Transmission Date: 20140515
  Serious: Yes (Hospitalization, Other)
  Sender: FDA-Public Use
  Company Number: US-ROCHE-802064

PATIENT
  Age: 20 Year
  Sex: Female
  Weight: 43.13 kg

DRUGS (1)
  1. ACCUTANE [Suspect]
     Indication: ACNE CYSTIC
     Route: 065
     Dates: start: 19910924, end: 19920219

REACTIONS (9)
  - Crohn^s disease [Unknown]
  - Inflammatory bowel disease [Unknown]
  - Depression [Not Recovered/Not Resolved]
  - Injury [Unknown]
  - Small intestinal obstruction [Unknown]
  - Irritable bowel syndrome [Unknown]
  - Nasal dryness [Unknown]
  - Epistaxis [Unknown]
  - Sinusitis [Unknown]
